FAERS Safety Report 7752404-7 (Version None)
Quarter: 2011Q3

REPORT INFORMATION
  Report Type: 
  Country: None (occurrence: None)
  Receive Date: 20110915
  Receipt Date: 20110901
  Transmission Date: 20111222
  Serious: No
  Sender: FDA-Public Use
  Company Number: PHHY2011NZ78000

PATIENT
  Sex: Female

DRUGS (2)
  1. TASIGNA [Suspect]
     Indication: CHRONIC MYELOID LEUKAEMIA
     Dosage: 400 MG, BID
     Route: 048
     Dates: start: 20110818
  2. TASIGNA [Suspect]
     Dosage: 200 MG, TID
     Route: 048

REACTIONS (7)
  - RASH ERYTHEMATOUS [None]
  - PARAESTHESIA [None]
  - DIZZINESS [None]
  - BLOOD PRESSURE DECREASED [None]
  - HEADACHE [None]
  - HOT FLUSH [None]
  - SKIN BURNING SENSATION [None]
